FAERS Safety Report 7105955-2 (Version None)
Quarter: 2010Q4

REPORT INFORMATION
  Report Type: 
  Country: None (occurrence: None)
  Receive Date: 20101018
  Receipt Date: 20100405
  Transmission Date: 20110411
  Serious: Yes (Other)
  Sender: FDA-Public Use
  Company Number: US-WYE-H14428110

PATIENT
  Age: 42 Year
  Sex: Female
  Weight: 106.69 kg

DRUGS (3)
  1. PREMARIN [Suspect]
     Indication: HYSTERECTOMY
     Dates: start: 19910101
  2. ESTROPIPATE [Suspect]
     Indication: HYSTERECTOMY
     Dosage: 0.625MG
     Dates: start: 19910101
  3. ZESTRIL [Concomitant]

REACTIONS (5)
  - FURUNCLE [None]
  - JOINT SWELLING [None]
  - OEDEMA PERIPHERAL [None]
  - PAIN IN EXTREMITY [None]
  - PAIN OF SKIN [None]
